FAERS Safety Report 11829519 (Version 2)
Quarter: 2020Q2

REPORT INFORMATION
  Report Type: Spontaneous
  Country: US (occurrence: US)
  Receive Date: 20151211
  Receipt Date: 20200603
  Transmission Date: 20200713
  Serious: Yes (Death, Hospitalization, Other)
  Sender: FDA-Public Use
  Company Number: US-ASTRAZENECA-2015SF23894

PATIENT
  Age: 774 Month
  Sex: Female
  Weight: 113.4 kg

DRUGS (52)
  1. LOSARTAN. [Concomitant]
     Active Substance: LOSARTAN
     Indication: HYPERTENSION
     Dates: start: 2010
  2. VERAPAMIL [Concomitant]
     Active Substance: VERAPAMIL HYDROCHLORIDE
  3. ZYVOX [Concomitant]
     Active Substance: LINEZOLID
  4. MUPIROCIN. [Concomitant]
     Active Substance: MUPIROCIN
  5. SYNTHROID [Concomitant]
     Active Substance: LEVOTHYROXINE SODIUM
  6. VITAMIN D [Concomitant]
     Active Substance: VITAMIN D NOS
  7. VITAMIN B6 [Concomitant]
     Active Substance: PYRIDOXINE HYDROCHLORIDE
  8. ASPIRIN. [Concomitant]
     Active Substance: ASPIRIN
  9. PROTONIX [Concomitant]
     Active Substance: PANTOPRAZOLE SODIUM
  10. XELODA [Concomitant]
     Active Substance: CAPECITABINE
  11. BYETTA [Suspect]
     Active Substance: EXENATIDE
     Indication: TYPE 2 DIABETES MELLITUS
     Dosage: 10.0UG UNKNOWN
     Route: 058
     Dates: start: 20070130
  12. GLIPIZIDE. [Concomitant]
     Active Substance: GLIPIZIDE
     Indication: TYPE 2 DIABETES MELLITUS
     Dates: start: 2009
  13. AMLODIPINE BESYLATE. [Concomitant]
     Active Substance: AMLODIPINE BESYLATE
     Indication: HYPERTENSION
     Dates: start: 2011
  14. AVAPRO [Concomitant]
     Active Substance: IRBESARTAN
     Indication: TYPE 2 DIABETES MELLITUS
     Dates: start: 2004
  15. DIOVAN [Concomitant]
     Active Substance: VALSARTAN
  16. TYLENOL [Concomitant]
     Active Substance: ACETAMINOPHEN
  17. MELOXICAM. [Concomitant]
     Active Substance: MELOXICAM
     Indication: ANALGESIC INTERVENTION SUPPORTIVE THERAPY
     Dates: start: 2009
  18. LANTUS [Concomitant]
     Active Substance: INSULIN GLARGINE
  19. ZOFRAN [Concomitant]
     Active Substance: ONDANSETRON HYDROCHLORIDE
  20. COMPAZINE [Concomitant]
     Active Substance: PROCHLORPERAZINE MALEATE
  21. JANUVIA [Concomitant]
     Active Substance: SITAGLIPTIN PHOSPHATE
  22. TRAMADOL. [Concomitant]
     Active Substance: TRAMADOL
  23. AMLODIPINE [Concomitant]
     Active Substance: AMLODIPINE BESYLATE
     Indication: HYPERTENSION
     Dates: start: 2011
  24. SIMVASTATIN. [Concomitant]
     Active Substance: SIMVASTATIN
     Indication: BLOOD CHOLESTEROL INCREASED
     Dates: start: 2008
  25. HYDROCHLOROTHIAZIDE. [Concomitant]
     Active Substance: HYDROCHLOROTHIAZIDE
     Indication: HYPERTENSION
     Dates: start: 2008
  26. MORPHINE SULPHATE [Concomitant]
     Active Substance: MORPHINE SULFATE
  27. GEMZAR [Concomitant]
     Active Substance: GEMCITABINE HYDROCHLORIDE
  28. PRILOSEC OTC [Concomitant]
     Active Substance: OMEPRAZOLE MAGNESIUM
  29. BYETTA [Suspect]
     Active Substance: EXENATIDE
     Indication: TYPE 2 DIABETES MELLITUS
     Route: 065
     Dates: start: 20070330, end: 20111230
  30. PRAVASTATIN. [Concomitant]
     Active Substance: PRAVASTATIN
     Indication: BLOOD CHOLESTEROL INCREASED
     Dates: start: 2011
  31. METFORMIN [Concomitant]
     Active Substance: METFORMIN HYDROCHLORIDE
     Indication: TYPE 2 DIABETES MELLITUS
     Dates: start: 2002
  32. TRIAMTERENE. [Concomitant]
     Active Substance: TRIAMTERENE
     Indication: DIURETIC THERAPY
     Dates: start: 2002
  33. FLUOXETINE [Concomitant]
     Active Substance: FLUOXETINE HYDROCHLORIDE
  34. CAPTOPRIL. [Concomitant]
     Active Substance: CAPTOPRIL
  35. DIFLUCAN [Concomitant]
     Active Substance: FLUCONAZOLE
  36. DAPTOMYCIN. [Concomitant]
     Active Substance: DAPTOMYCIN
  37. TOPROL XL [Concomitant]
     Active Substance: METOPROLOL SUCCINATE
  38. TIZANIDINE. [Concomitant]
     Active Substance: TIZANIDINE
  39. AMOX-CLAV [Concomitant]
     Active Substance: AMOXICILLIN\CLAVULANATE POTASSIUM
  40. OXYCODONE [Concomitant]
     Active Substance: OXYCODONE
  41. FISH OIL [Concomitant]
     Active Substance: FISH OIL
  42. ACTOS [Concomitant]
     Active Substance: PIOGLITAZONE HYDROCHLORIDE
     Indication: TYPE 2 DIABETES MELLITUS
     Dates: start: 2002
  43. NOVOLIN NOS [Concomitant]
     Active Substance: INSULIN HUMAN
  44. EMLA [Concomitant]
     Active Substance: LIDOCAINE\PRILOCAINE
  45. MULTIVITAMIN [Concomitant]
     Active Substance: VITAMINS
  46. SUCRALFATE. [Concomitant]
     Active Substance: SUCRALFATE
  47. CELEBREX [Concomitant]
     Active Substance: CELECOXIB
  48. NAPROXEN. [Concomitant]
     Active Substance: NAPROXEN
  49. MECLIZINE [Concomitant]
     Active Substance: MECLIZINE HYDROCHLORIDE
  50. CLINDAMYCIN. [Concomitant]
     Active Substance: CLINDAMYCIN
  51. COZAAR [Concomitant]
     Active Substance: LOSARTAN POTASSIUM
  52. VITAMIN B12 [Concomitant]
     Active Substance: CYANOCOBALAMIN

REACTIONS (6)
  - Depression [Unknown]
  - Pancreatic carcinoma [Unknown]
  - Jaundice cholestatic [Unknown]
  - Pancreatic carcinoma metastatic [Fatal]
  - Metastases to liver [Unknown]
  - Adenocarcinoma pancreas [Unknown]

NARRATIVE: CASE EVENT DATE: 201204
